FAERS Safety Report 6659965-X (Version None)
Quarter: 2010Q1

REPORT INFORMATION
  Report Type: 
  Country: None (occurrence: None)
  Receive Date: 20100331
  Receipt Date: 20100324
  Transmission Date: 20100710
  Serious: Yes (Other)
  Sender: FDA-Public Use
  Company Number: CA-BIOGENIDEC-2009BI035200

PATIENT
  Age: 33 Year
  Sex: Female

DRUGS (4)
  1. TYSABRI [Suspect]
     Indication: RELAPSING-REMITTING MULTIPLE SCLEROSIS
     Route: 042
     Dates: start: 20090619, end: 20091019
  2. DOXEPIN HCL [Concomitant]
     Indication: HEADACHE
     Dates: start: 20091101
  3. PERCOCET [Concomitant]
     Indication: PAIN
     Dates: start: 20070101
  4. IMMOVANE [Concomitant]
     Indication: INSOMNIA
     Dates: start: 20070101

REACTIONS (1)
  - BASAL CELL CARCINOMA [None]
